FAERS Safety Report 4916939-4 (Version None)
Quarter: 2006Q1

REPORT INFORMATION
  Report Type: 
  Country: None (occurrence: None)
  Receive Date: 20060221
  Receipt Date: 20060217
  Transmission Date: 20060701
  Serious: Yes (Death)
  Sender: FDA-Public Use
  Company Number: PHBS2006JP02575

PATIENT
  Sex: Female

DRUGS (1)
  1. LAMISIL [Suspect]
     Route: 048

REACTIONS (5)
  - C-REACTIVE PROTEIN INCREASED [None]
  - DEATH [None]
  - DISSEMINATED INTRAVASCULAR COAGULATION [None]
  - PURPURA [None]
  - PYREXIA [None]
